FAERS Safety Report 17431949 (Version 2)
Quarter: 2020Q1

REPORT INFORMATION
  Report Type: Spontaneous
  Country: BR (occurrence: BR)
  Receive Date: 20200218
  Receipt Date: 20200220
  Transmission Date: 20200409
  Serious: Yes (Other)
  Sender: FDA-Public Use
  Company Number: NVSC2020BR043063

PATIENT
  Age: 46 Year
  Sex: Male
  Weight: 52 kg

DRUGS (13)
  1. OMEPRAZOLE. [Concomitant]
     Active Substance: OMEPRAZOLE
     Indication: OESOPHAGEAL PAIN
     Dosage: 20 MG, QD (STARTED 2 OR 3 YEARS AGO)
     Route: 048
  2. REVOLADE [Concomitant]
     Active Substance: ELTROMBOPAG
     Indication: PLATELET COUNT INCREASED
     Dosage: 50 MG, QD
     Route: 048
     Dates: start: 201908, end: 201912
  3. VITAMIN B COMPLEX [Concomitant]
     Active Substance: CYANOCOBALAMIN\DEXPANTHENOL\NIACINAMIDE\PYRIDOXINE HYDROCHLORIDE\RIBOFLAVIN 5^-PHOSPHATE SODIUM\THIAMINE HYDROCHLORIDE\VITAMIN B COMPLEX
     Indication: SUPPLEMENTATION THERAPY
     Dosage: 6 DRP, QD
     Route: 048
     Dates: start: 201908
  4. LOTAR [Concomitant]
     Active Substance: AMLODIPINE\LOSARTAN
     Indication: HYPERTENSION
     Dosage: 50 MG, QD(MANY YEARS AGO)
     Route: 048
  5. CYCLOSPORINE. [Concomitant]
     Active Substance: CYCLOSPORINE
     Indication: PRODUCT USED FOR UNKNOWN INDICATION
     Dosage: UNK
     Route: 065
  6. ZOLPIDEM [Suspect]
     Active Substance: ZOLPIDEM TARTRATE
     Indication: PLATELET DISORDER
  7. REVOLADE [Concomitant]
     Active Substance: ELTROMBOPAG
     Dosage: 3 DF, QD (3 TABLETS OF 50 MG)
     Route: 048
     Dates: start: 201912
  8. VONAU [Concomitant]
     Active Substance: ONDANSETRON HYDROCHLORIDE
     Indication: NAUSEA
     Dosage: 1 DF, QD
     Route: 048
     Dates: start: 201807
  9. ZOLPIDEM [Suspect]
     Active Substance: ZOLPIDEM TARTRATE
     Indication: AMYOTROPHIC LATERAL SCLEROSIS
     Dosage: 10 MG, QD (STARTED MORE THAN A YEAR)
     Route: 048
  10. MIRTAZAPINE. [Concomitant]
     Active Substance: MIRTAZAPINE
     Indication: DEPRESSION
     Dosage: 30 MG, QD
     Route: 048
     Dates: start: 201909
  11. VITAMIN D [Concomitant]
     Active Substance: VITAMIN D NOS
     Indication: SUPPLEMENTATION THERAPY
     Dosage: 8 DRP, QD
     Route: 048
     Dates: start: 201908
  12. DECADRON [Concomitant]
     Active Substance: DEXAMETHASONE
     Indication: PRODUCT USED FOR UNKNOWN INDICATION
     Dosage: 4 MG, QD (1 YEAR AGO)
     Route: 048
  13. DEFERASIROX. [Concomitant]
     Active Substance: DEFERASIROX
     Indication: BLOOD IRON INCREASED
     Dosage: 500 MG, QD
     Route: 048
     Dates: start: 20190917

REACTIONS (9)
  - Lip haemorrhage [Recovered/Resolved]
  - Product use in unapproved indication [Unknown]
  - Weight abnormal [Recovered/Resolved]
  - Dysphagia [Recovered/Resolved]
  - Drug ineffective [Unknown]
  - Mouth haemorrhage [Recovered/Resolved]
  - Platelet count decreased [Unknown]
  - Gingival bleeding [Recovered/Resolved]
  - Thrombosis [Recovering/Resolving]

NARRATIVE: CASE EVENT DATE: 201908
